FAERS Safety Report 8808494 (Version 1)
Quarter: 2012Q4

REPORT INFORMATION
  Report Type: Spontaneous
  Country: US (occurrence: None)
  Receive Date: 20120920
  Receipt Date: 20120920
  Transmission Date: 20130627
  Serious: Yes (Death)
  Sender: FDA-Public Use
  Company Number: 1416725

PATIENT
  Age: 81 Year
  Sex: Male

DRUGS (1)
  1. IRINOTECAN HYDROCHLORIDE [Suspect]
     Indication: SMALL CELL CARCINOMA OF THE LUNG
     Route: 041

REACTIONS (3)
  - Respiratory failure [None]
  - Pneumonitis [None]
  - Pulmonary toxicity [None]
